FAERS Safety Report 10007365 (Version 2)
Quarter: 2014Q1

REPORT INFORMATION
  Report Type: Spontaneous
  Country: US (occurrence: US)
  Receive Date: 20140313
  Receipt Date: 20140313
  Transmission Date: 20141002
  Serious: Yes (Life-Threatening)
  Sender: FDA-Public Use
  Company Number: US-ASTRAZENECA-2011SE65282

PATIENT
  Age: 48 Year
  Sex: Female

DRUGS (6)
  1. PROPRANOLOL [Suspect]
  2. QUETIAPINE [Suspect]
     Route: 048
  3. ESCITALOPRAM [Suspect]
  4. ATORVASTATIN [Suspect]
  5. CLONIDINE [Suspect]
  6. LORAZEPAM [Suspect]

REACTIONS (5)
  - Overdose [Recovering/Resolving]
  - Coma scale abnormal [Recovering/Resolving]
  - Heart rate decreased [Recovering/Resolving]
  - Blood pressure systolic decreased [Recovered/Resolved]
  - Metabolic acidosis [Unknown]
